FAERS Safety Report 5487700-X (Version None)
Quarter: 2007Q4

REPORT INFORMATION
  Report Type: 
  Country: None (occurrence: None)
  Receive Date: 20071017
  Receipt Date: 20071008
  Transmission Date: 20080405
  Serious: Yes (Hospitalization)
  Sender: FDA-Public Use
  Company Number: PHRM2007FR02334

PATIENT
  Age: 98 Year
  Sex: Male

DRUGS (5)
  1. ESIDRIX [Suspect]
     Dosage: 25 MG, QD
     Route: 048
     Dates: end: 20060301
  2. LASIX [Suspect]
     Dosage: 60 MG, QD
     Route: 048
     Dates: end: 20060301
  3. PERINDOPRIL ERBUMINE [Suspect]
     Dosage: 4 MG, QD
     Route: 048
     Dates: end: 20060301
  4. DIGOXIN [Suspect]
     Dosage: 0.125 MG, QW4
     Route: 048
     Dates: end: 20060301
  5. KARDEGIC [Concomitant]
     Dosage: 75 MG, QD
     Route: 048

REACTIONS (14)
  - BEDRIDDEN [None]
  - BLOOD CREATINE PHOSPHOKINASE INCREASED [None]
  - BLOOD CREATININE INCREASED [None]
  - BLOOD UREA INCREASED [None]
  - CARDIOACTIVE DRUG LEVEL ABOVE THERAPEUTIC [None]
  - DEHYDRATION [None]
  - FALL [None]
  - FLUID REPLACEMENT [None]
  - HYPOTENSION [None]
  - MALAISE [None]
  - MYOGLOBIN BLOOD INCREASED [None]
  - PHYSICAL DISABILITY [None]
  - RENAL FAILURE [None]
  - RHABDOMYOLYSIS [None]
